FAERS Safety Report 10204660 (Version 1)
Quarter: 2014Q2

REPORT INFORMATION
  Report Type: Spontaneous
  Country: US (occurrence: None)
  Receive Date: 20140527
  Receipt Date: 20140527
  Transmission Date: 20141212
  Serious: Yes (Disabling)
  Sender: FDA-Public Use
  Company Number: None

PATIENT
  Age: 52 Year
  Sex: Female
  Weight: 74.84 kg

DRUGS (1)
  1. LEVOFLOXACIN [Suspect]
     Indication: BRONCHITIS
     Dosage: 5 PILLS ONCE DAILY
     Dates: start: 20140502, end: 20140504

REACTIONS (4)
  - Diarrhoea haemorrhagic [None]
  - Muscular weakness [None]
  - Gait disturbance [None]
  - Muscular weakness [None]
